FAERS Safety Report 7354869-1 (Version None)
Quarter: 2011Q1

REPORT INFORMATION
  Report Type: 
  Country: None (occurrence: None)
  Receive Date: 20110307
  Receipt Date: 20110219
  Transmission Date: 20110831
  Serious: Yes (Other)
  Sender: FDA-Public Use
  Company Number: IPC201102-000133

PATIENT
  Age: 20 Year
  Sex: Female

DRUGS (3)
  1. TRIHEXYPHENIDYL [Suspect]
     Indication: SCHIZOPHRENIA
     Dosage: 2 MG/DAY
  2. RISPERIDONE [Suspect]
     Indication: SCHIZOPHRENIA
     Dosage: (4 MG/DAY) (3 MG/D) (3.5 MG/D)
     Dates: start: 20080401
  3. METFORMIN HYDROCHLORIDE [Suspect]
     Indication: WEIGHT INCREASED
     Dosage: (250 MG/D) (500 MG/D)
     Dates: start: 20080501

REACTIONS (3)
  - THOUGHT BROADCASTING [None]
  - PSYCHOTIC DISORDER [None]
  - CONDITION AGGRAVATED [None]
